FAERS Safety Report 8030570-6 (Version None)
Quarter: 2012Q1

REPORT INFORMATION
  Report Type: 
  Country: None (occurrence: None)
  Receive Date: 20120105
  Receipt Date: 20111229
  Transmission Date: 20120608
  Serious: Yes (Other)
  Sender: FDA-Public Use
  Company Number: 2011AP003090

PATIENT
  Age: 53 Year
  Sex: Male

DRUGS (3)
  1. SIMVASTATIN [Concomitant]
  2. SOTALOL HCL [Concomitant]
  3. FLECAINIDE ACETATE [Suspect]
     Indication: ATRIAL FIBRILLATION
     Dosage: 50MG;BID, 100 MG;BID, 150 MG;BID, 50 MG;BID, 600 MG;1X

REACTIONS (4)
  - INCORRECT DOSE ADMINISTERED [None]
  - BRUGADA SYNDROME [None]
  - ATRIAL FLUTTER [None]
  - SELF-MEDICATION [None]
